FAERS Safety Report 8537532 (Version 4)
Quarter: 2014Q3

REPORT INFORMATION
  Report Type: Spontaneous
  Country: FR (occurrence: FR)
  Receive Date: 20120501
  Receipt Date: 20140729
  Transmission Date: 20150326
  Serious: Yes (Other)
  Sender: FDA-Public Use
  Company Number: FR-RANBAXY-2012RR-55919

PATIENT
  Age: 74 Year
  Sex: Female

DRUGS (2)
  1. NORFLOXACIN [Suspect]
     Active Substance: NORFLOXACIN
     Indication: CYSTITIS
     Dosage: UNK
     Route: 065
     Dates: start: 201007
  2. SIMVASTATIN. [Suspect]
     Active Substance: SIMVASTATIN
     Indication: HYPERLIPIDAEMIA
     Dosage: UNK
     Route: 065
     Dates: start: 1999

REACTIONS (2)
  - Rhabdomyolysis [Recovering/Resolving]
  - Drug interaction [Recovering/Resolving]
